FAERS Safety Report 12979042 (Version 1)
Quarter: 2016Q4

REPORT INFORMATION
  Report Type: Spontaneous
  Country: US (occurrence: US)
  Receive Date: 20161128
  Receipt Date: 20161128
  Transmission Date: 20170207
  Serious: No
  Sender: FDA-Public Use
  Company Number: US-BAYER-2016-223383

PATIENT
  Age: 68 Year
  Sex: Female
  Weight: 68.93 kg

DRUGS (2)
  1. LOTREL [Concomitant]
     Active Substance: AMLODIPINE BESYLATE\BENAZEPRIL HYDROCHLORIDE
     Indication: CONSTIPATION
     Dosage: 2.5-10, BID
  2. MIRALAX [Suspect]
     Active Substance: POLYETHYLENE GLYCOL 3350
     Indication: GASTROINTESTINAL DISORDER
     Dosage: 2 TEASPOON
     Route: 048

REACTIONS (6)
  - Weight increased [Unknown]
  - Product use issue [Unknown]
  - Blood pressure abnormal [None]
  - Blood pressure decreased [Unknown]
  - Blood pressure decreased [None]
  - Product use issue [None]

NARRATIVE: CASE EVENT DATE: 201608
